FAERS Safety Report 10833357 (Version 1)
Quarter: 2015Q1

REPORT INFORMATION
  Report Type: Report from Study
  Country: GB (occurrence: GB)
  Receive Date: 20150219
  Receipt Date: 20150219
  Transmission Date: 20150721
  Serious: Yes (Hospitalization)
  Sender: FDA-Public Use
  Company Number: GB-ABBVIE-15K-167-1347805-00

PATIENT
  Age: 75 Year
  Sex: Male
  Weight: 78 kg

DRUGS (1)
  1. HUMIRA [Suspect]
     Active Substance: ADALIMUMAB
     Indication: RHEUMATOID ARTHRITIS
     Route: 058
     Dates: start: 20100610

REACTIONS (3)
  - Diarrhoea [Unknown]
  - Colitis [Unknown]
  - Abdominal pain [Unknown]

NARRATIVE: CASE EVENT DATE: 20141117
